FAERS Safety Report 6618345-3 (Version None)
Quarter: 2010Q1

REPORT INFORMATION
  Report Type: 
  Country: None (occurrence: None)
  Receive Date: 20100308
  Receipt Date: 20100305
  Transmission Date: 20100710
  Serious: Yes (Hospitalization)
  Sender: FDA-Public Use
  Company Number: A0847143A

PATIENT
  Sex: Male

DRUGS (1)
  1. LOVAZA [Suspect]
     Route: 048
     Dates: start: 20091118, end: 20100216

REACTIONS (4)
  - DYSPNOEA [None]
  - FLUID RETENTION [None]
  - PAIN [None]
  - PULMONARY FIBROSIS [None]
